FAERS Safety Report 7339275-8 (Version None)
Quarter: 2011Q1

REPORT INFORMATION
  Report Type: 
  Country: None (occurrence: None)
  Receive Date: 20110228
  Receipt Date: 20110216
  Transmission Date: 20110831
  Serious: Yes (Death)
  Sender: FDA-Public Use
  Company Number: 027720

PATIENT
  Age: 53 Year
  Sex: Male

DRUGS (1)
  1. KEPPRA [Suspect]
     Dosage: (500MG) (TO NOT CONTINUING)

REACTIONS (1)
  - DEATH [None]
